FAERS Safety Report 7362901 (Version 3)
Quarter: 2012Q4

REPORT INFORMATION
  Report Type: 
  Country: US (occurrence: US)
  Receive Date: 20100422
  Receipt Date: 20121024
  Transmission Date: 20130627
  Serious: No
  Sender: FDA-Public Use
  Company Number: US-ASTRAZENECA-2009SE18142

PATIENT
  Age: 65 Year
  Sex: Female

DRUGS (7)
  1. TOPROL XL [Suspect]
     Dosage: TOTAL DAILY DOSE 25 MG , TWO TIMES A DAY
     Route: 048
  2. TOPROL XL [Suspect]
     Route: 048
     Dates: start: 200703
  3. TOPROL XL [Suspect]
     Route: 048
  4. METOPROLOL [Suspect]
     Route: 065
  5. CYMBALTA [Concomitant]
  6. NEURONTIN [Concomitant]
  7. HCTZ [Concomitant]

REACTIONS (19)
  - Decreased appetite [Unknown]
  - Hypertension [Unknown]
  - Blood glucose increased [Unknown]
  - Malaise [Unknown]
  - Hyperphagia [Unknown]
  - Abdominal distension [Not Recovered/Not Resolved]
  - Heart rate increased [Unknown]
  - Blood pressure inadequately controlled [Unknown]
  - Blood pressure abnormal [Unknown]
  - Menopause [Unknown]
  - Blood cholesterol abnormal [Unknown]
  - Feeling drunk [Unknown]
  - Drug intolerance [Unknown]
  - Weight increased [Unknown]
  - Fatigue [Unknown]
  - Nausea [Unknown]
  - Vomiting [Unknown]
  - Headache [Unknown]
  - Drug ineffective [Unknown]
